FAERS Safety Report 16794155 (Version 1)
Quarter: 2019Q3

REPORT INFORMATION
  Report Type: Report from Study
  Country: CA (occurrence: CA)
  Receive Date: 20190911
  Receipt Date: 20190911
  Transmission Date: 20191005
  Serious: Yes (Other)
  Sender: FDA-Public Use
  Company Number: CA-SAMSUNG BIOEPIS-SB-2019-26218

PATIENT
  Sex: Male
  Weight: 27.6 kg

DRUGS (1)
  1. RENFLEXIS [Suspect]
     Active Substance: INFLIXIMAB-ABDA
     Indication: CROHN^S DISEASE
     Dosage: WEEK ZERO FREQUENCY
     Route: 042
     Dates: start: 20190828

REACTIONS (2)
  - Injection site pain [Unknown]
  - Injection site phlebitis [Unknown]
